FAERS Safety Report 13760145 (Version 1)
Quarter: 2017Q3

REPORT INFORMATION
  Report Type: Spontaneous
  Country: US (occurrence: US)
  Receive Date: 20170717
  Receipt Date: 20170717
  Transmission Date: 20171127
  Serious: Yes (Other)
  Sender: FDA-Public Use
  Company Number: US-AMGEN-USASP2017105030

PATIENT
  Sex: Male

DRUGS (4)
  1. CORLANOR [Suspect]
     Active Substance: IVABRADINE HYDROCHLORIDE
     Indication: PRODUCT USED FOR UNKNOWN INDICATION
     Dosage: 2.5 MG, BID (CUTS THE 5 MG IN HALF)
     Route: 065
  2. AMIODARONE [Concomitant]
     Active Substance: AMIODARONE
     Dosage: UNK
  3. CORLANOR [Suspect]
     Active Substance: IVABRADINE HYDROCHLORIDE
     Dosage: UNK, DOSE DECREASE
     Route: 065
     Dates: start: 201707
  4. CARVEDILOL. [Concomitant]
     Active Substance: CARVEDILOL
     Dosage: UNK

REACTIONS (1)
  - Bradycardia [Unknown]
